FAERS Safety Report 20526952 (Version 1)
Quarter: 2022Q1

REPORT INFORMATION
  Report Type: Spontaneous
  Country: US (occurrence: None)
  Receive Date: 20220228
  Receipt Date: 20220228
  Transmission Date: 20220423
  Serious: Yes (Other)
  Sender: FDA-Public Use
  Company Number: None

PATIENT
  Sex: Female

DRUGS (4)
  1. RETEVMO [Suspect]
     Active Substance: SELPERCATINIB
     Indication: Lung neoplasm malignant
     Dosage: FREQUENCY : TWICE A DAY;?
     Route: 048
     Dates: start: 202111
  2. RETEVMO [Suspect]
     Active Substance: SELPERCATINIB
     Indication: Bronchial carcinoma
  3. RETEVMO [Suspect]
     Active Substance: SELPERCATINIB
     Indication: Lung neoplasm malignant
     Dosage: FREQUENCY : TWICE A DAY;?
     Route: 048
     Dates: start: 202012
  4. RETEVMO [Suspect]
     Active Substance: SELPERCATINIB
     Indication: Bronchial carcinoma

REACTIONS (1)
  - Pulmonary oedema [None]
